FAERS Safety Report 7435664-1 (Version None)
Quarter: 2011Q2

REPORT INFORMATION
  Report Type: 
  Country: None (occurrence: None)
  Receive Date: 20110425
  Receipt Date: 20110412
  Transmission Date: 20111010
  Serious: Yes (Other)
  Sender: FDA-Public Use
  Company Number: PHHY2011US30757

PATIENT

DRUGS (2)
  1. GLEEVEC [Suspect]
     Dosage: UNK
  2. TASIGNA [Suspect]
     Dosage: UNK

REACTIONS (1)
  - GENE MUTATION IDENTIFICATION TEST POSITIVE [None]
